FAERS Safety Report 21631764 (Version 1)
Quarter: 2022Q4

REPORT INFORMATION
  Report Type: Spontaneous
  Country: DE (occurrence: DE)
  Receive Date: 20221123
  Receipt Date: 20221123
  Transmission Date: 20230112
  Serious: Yes (Hospitalization)
  Sender: FDA-Public Use
  Company Number: None

PATIENT
  Age: 61 Year
  Sex: Male
  Weight: 74 kg

DRUGS (2)
  1. RIBAVIRIN [Suspect]
     Active Substance: RIBAVIRIN
     Indication: Hepatitis C
     Dosage: 1000MG/DIE
     Route: 048
     Dates: start: 20150819, end: 20151111
  2. HARVONI [Suspect]
     Active Substance: LEDIPASVIR\SOFOSBUVIR
     Indication: Hepatitis C
     Dosage: HARVONI 90MG/DIE
     Route: 048
     Dates: start: 20150819, end: 20151111

REACTIONS (4)
  - Oedema peripheral [Unknown]
  - Femur fracture [Recovered/Resolved]
  - Sleep disorder [Unknown]
  - Monoparesis [Unknown]

NARRATIVE: CASE EVENT DATE: 20220201
